FAERS Safety Report 10570351 (Version 2)
Quarter: 2015Q2

REPORT INFORMATION
  Report Type: Report from Study
  Country: GT (occurrence: GT)
  Receive Date: 20141107
  Receipt Date: 20150424
  Transmission Date: 20150821
  Serious: Yes (Other)
  Sender: FDA-Public Use
  Company Number: PHHY2014GT142820

PATIENT
  Age: 27 Year
  Sex: Female

DRUGS (1)
  1. GILENYA [Suspect]
     Active Substance: FINGOLIMOD HYDROCHLORIDE
     Indication: PRODUCT USED FOR UNKNOWN INDICATION
     Dosage: UNK
     Route: 065
     Dates: end: 201502

REACTIONS (8)
  - Paraesthesia [Unknown]
  - Headache [Unknown]
  - Eye pain [Unknown]
  - Burning sensation [Unknown]
  - Visual impairment [Unknown]
  - Multiple sclerosis relapse [Unknown]
  - Vision blurred [Unknown]
  - Blindness [Unknown]

NARRATIVE: CASE EVENT DATE: 20140902
